FAERS Safety Report 24905832 (Version 4)
Quarter: 2025Q3

REPORT INFORMATION
  Report Type: Spontaneous
  Country: CO (occurrence: CO)
  Receive Date: 20250130
  Receipt Date: 20250915
  Transmission Date: 20251021
  Serious: Yes (Other)
  Sender: RECORDATI
  Company Number: CO-RECORDATI-2023002754

PATIENT
  Age: 9 Year
  Sex: Male
  Weight: 17 kg

DRUGS (15)
  1. CYSTAGON [Suspect]
     Active Substance: CYSTEAMINE BITARTRATE
     Indication: Cystinosis
     Dosage: 300 MILLIGRAM, Q6H
     Route: 048
     Dates: start: 20140402
  2. CYSTAGON [Suspect]
     Active Substance: CYSTEAMINE BITARTRATE
     Route: 048
     Dates: start: 20210419
  3. CYSTAGON [Suspect]
     Active Substance: CYSTEAMINE BITARTRATE
     Dosage: 300 MILLIGRAM, Q6H (1200 MG EVERY 24 HRS DIVIDED IN 4 TAKES)
     Route: 048
     Dates: start: 2023, end: 20230502
  4. CYSTAGON [Suspect]
     Active Substance: CYSTEAMINE BITARTRATE
     Route: 048
     Dates: start: 202305
  5. CYSTAGON [Suspect]
     Active Substance: CYSTEAMINE BITARTRATE
     Route: 048
  6. CYSTADROPS [Suspect]
     Active Substance: CYSTEAMINE HYDROCHLORIDE
     Indication: Cystinosis
     Dosage: 4 GTT DROPS, Q6H
     Route: 047
     Dates: start: 20140402
  7. KIDCAL [CALCIUM CARBONATE] [Concomitant]
     Indication: Product used for unknown indication
     Dosage: 5 MILLILITER, Q12H
     Route: 048
  8. NUCTIS D [Concomitant]
     Indication: Product used for unknown indication
     Dosage: 7 GTT DROPS, Q12H
     Route: 048
  9. L CARNITINA [LEVOCARNITINE HYDROCHLORIDE] [Concomitant]
     Indication: Product used for unknown indication
     Dosage: 200 MILLIGRAM, Q8H
  10. POTASSIUM CHLORIDE [Concomitant]
     Active Substance: POTASSIUM CHLORIDE
     Indication: Product used for unknown indication
     Dosage: 1 VIAL, QD
     Route: 048
  11. ASCORBIC ACID [Concomitant]
     Active Substance: ASCORBIC ACID
     Indication: Vitamin supplementation
     Dosage: 10 GTT DROPS, QD (Q24H)
     Route: 048
  12. ASCORBIC ACID [Concomitant]
     Active Substance: ASCORBIC ACID
  13. FERROUS SULFATE [Concomitant]
     Active Substance: FERROUS SULFATE
     Indication: Vitamin supplementation
     Dosage: 10 GTT DROPS, Q12H
     Route: 048
  14. CALCITRIOL [Concomitant]
     Active Substance: CALCITRIOL
     Indication: Vitamin supplementation
  15. OMEPRAZOLE [Concomitant]
     Active Substance: OMEPRAZOLE
     Indication: Gastritis prophylaxis

REACTIONS (1)
  - Amino acid level increased [Not Recovered/Not Resolved]

NARRATIVE: CASE EVENT DATE: 20230301
